FAERS Safety Report 9096508 (Version 1)
Quarter: 2013Q1

REPORT INFORMATION
  Report Type: Spontaneous
  Country: IR (occurrence: None)
  Receive Date: 20130124
  Receipt Date: 20130124
  Transmission Date: 20140127
  Serious: Yes (Life-Threatening)
  Sender: FDA-Public Use
  Company Number: DSA_61976_2013

PATIENT
  Age: 36 Year
  Sex: Female

DRUGS (1)
  1. ACYCLOVIR /00587301/ (ACYCLOVIR) [Suspect]
     Indication: ENCEPHALITIS
     Route: 042

REACTIONS (4)
  - Hepatotoxicity [None]
  - Nausea [None]
  - Drug ineffective [None]
  - Brucellosis [None]
